FAERS Safety Report 14195946 (Version 1)
Quarter: 2017Q4

REPORT INFORMATION
  Report Type: Other
  Country: FR (occurrence: FR)
  Receive Date: 20171116
  Receipt Date: 20171116
  Transmission Date: 20180321
  Serious: Yes (Hospitalization)
  Sender: FDA-Public Use
  Company Number: FR-GEHC-2017CSU003684

PATIENT

DRUGS (9)
  1. OMNIPAQUE [Suspect]
     Active Substance: IOHEXOL
     Indication: BACK PAIN
     Dosage: 1 DF, SINGLE
     Route: 024
     Dates: start: 20170804, end: 20170804
  2. XYLOCAINE [Suspect]
     Active Substance: LIDOCAINE HYDROCHLORIDE
     Indication: BACK PAIN
     Dosage: 1 DF, UNK
     Route: 008
     Dates: start: 20170804, end: 20170804
  3. VERAPAMIL [Concomitant]
     Active Substance: VERAPAMIL HYDROCHLORIDE
     Indication: HYPERTENSION
  4. FIVASA                             /00747601/ [Concomitant]
     Active Substance: MESALAMINE
     Indication: COLITIS
  5. CRESTOR [Concomitant]
     Active Substance: ROSUVASTATIN CALCIUM
     Indication: DYSLIPIDAEMIA
  6. COVERSYL                           /00790702/ [Concomitant]
     Active Substance: PERINDOPRIL
     Indication: HYPERTENSION
  7. KARDEGIC [Concomitant]
     Active Substance: ASPIRIN DL-LYSINE
     Indication: HYPERTENSION
  8. HYDROCORTANCYL                     /00016201/ [Suspect]
     Active Substance: PREDNISONE
     Indication: PRODUCT USED FOR UNKNOWN INDICATION
     Dosage: UNK
     Route: 065
     Dates: start: 20170804, end: 20170804
  9. LANSOPRAZOLE. [Concomitant]
     Active Substance: LANSOPRAZOLE
     Indication: GASTROOESOPHAGEAL REFLUX DISEASE

REACTIONS (5)
  - Staphylococcal sepsis [Recovered/Resolved]
  - Respiratory distress [Unknown]
  - Erectile dysfunction [Unknown]
  - Off label use [Unknown]
  - Intervertebral discitis [Recovering/Resolving]

NARRATIVE: CASE EVENT DATE: 20170804
